FAERS Safety Report 13270822 (Version 1)
Quarter: 2017Q1

REPORT INFORMATION
  Report Type: Spontaneous
  Country: US (occurrence: US)
  Receive Date: 20170225
  Receipt Date: 20170225
  Transmission Date: 20170428
  Serious: No
  Sender: FDA-Public Use
  Company Number: US-INVENTIA-000147

PATIENT
  Sex: Female

DRUGS (1)
  1. METFORMIN INVENTIA [Suspect]
     Active Substance: METFORMIN HYDROCHLORIDE
     Indication: PRODUCT USED FOR UNKNOWN INDICATION
     Dosage: DOSAGE FORM: EXTENDED RELEASE TABLET

REACTIONS (2)
  - Pruritus [Unknown]
  - Product substitution issue [Unknown]
